FAERS Safety Report 18464556 (Version 6)
Quarter: 2021Q3

REPORT INFORMATION
  Report Type: Spontaneous
  Country: US (occurrence: US)
  Receive Date: 20201104
  Receipt Date: 20210723
  Transmission Date: 20211014
  Serious: Yes (Other)
  Sender: FDA-Public Use
  Company Number: US-MALLINCKRODT-T202005182

PATIENT
  Sex: Female
  Weight: 76 kg

DRUGS (1)
  1. H.P. ACTHAR [Suspect]
     Active Substance: CORTICOTROPIN
     Indication: RHEUMATOID ARTHRITIS
     Dosage: 80 UNITS (1ML) TWO TIMES A WEEK
     Route: 058
     Dates: start: 202001, end: 202011

REACTIONS (6)
  - Gait disturbance [Not Recovered/Not Resolved]
  - Neck surgery [Unknown]
  - COVID-19 [Not Recovered/Not Resolved]
  - Kidney infection [Unknown]
  - Flank pain [Not Recovered/Not Resolved]
  - Neck deformity [Unknown]

NARRATIVE: CASE EVENT DATE: 2020
